FAERS Safety Report 12893336 (Version 1)
Quarter: 2016Q4

REPORT INFORMATION
  Report Type: Spontaneous
  Country: US (occurrence: US)
  Receive Date: 20161028
  Receipt Date: 20161028
  Transmission Date: 20170207
  Serious: Yes (Other)
  Sender: FDA-Public Use
  Company Number: US-009507513-1610USA012143

PATIENT
  Age: 30 Year
  Sex: Female
  Weight: 51.25 kg

DRUGS (2)
  1. IMPLANON [Suspect]
     Active Substance: ETONOGESTREL
     Dosage: ONE ROD /3 YEARS
     Route: 059
     Dates: end: 20120508
  2. IMPLANON [Suspect]
     Active Substance: ETONOGESTREL
     Dosage: ONE ROD, 3 YEARS
     Route: 059
     Dates: start: 201205

REACTIONS (4)
  - Incorrect drug administration duration [Unknown]
  - Complication associated with device [Recovered/Resolved]
  - No adverse event [Unknown]
  - Device dislocation [Not Recovered/Not Resolved]

NARRATIVE: CASE EVENT DATE: 2015
